FAERS Safety Report 13937011 (Version 3)
Quarter: 2017Q4

REPORT INFORMATION
  Report Type: Spontaneous
  Country: US (occurrence: US)
  Receive Date: 20170905
  Receipt Date: 20171205
  Transmission Date: 20180320
  Serious: No
  Sender: FDA-Public Use
  Company Number: US-PFIZER INC-2017379442

PATIENT
  Age: 81 Year
  Sex: Female

DRUGS (2)
  1. PREMARIN [Suspect]
     Active Substance: ESTROGENS, CONJUGATED
     Indication: ATROPHIC VULVOVAGINITIS
  2. PREMARIN [Suspect]
     Active Substance: ESTROGENS, CONJUGATED
     Indication: CONNECTIVE TISSUE DISORDER
     Dosage: UNK, 2X/WEEK [INSERT 1/4 APPLICATOR INTO VAGINA]
     Route: 067

REACTIONS (1)
  - Bladder prolapse [Not Recovered/Not Resolved]
